FAERS Safety Report 18735667 (Version 1)
Quarter: 2021Q1

REPORT INFORMATION
  Report Type: Spontaneous
  Country: US (occurrence: US)
  Receive Date: 20210113
  Receipt Date: 20210113
  Transmission Date: 20210419
  Serious: Yes (Life-Threatening, Hospitalization)
  Sender: FDA-Public Use
  Company Number: US-MYLANLABS-2021M1001511

PATIENT
  Age: 35 Year
  Sex: Female

DRUGS (25)
  1. FENTANYL. [Suspect]
     Active Substance: FENTANYL
     Indication: GENERAL ANAESTHESIA
     Dosage: 200 MILLIGRAM
     Route: 065
  2. LIDOCAINE. [Interacting]
     Active Substance: LIDOCAINE
     Indication: GENERAL ANAESTHESIA
     Dosage: 3 MG/MINUTE
     Route: 042
  3. LIDOCAINE. [Interacting]
     Active Substance: LIDOCAINE
     Dosage: 78 MILLIGRAM
     Route: 040
  4. KETAMINE [Interacting]
     Active Substance: KETAMINE
     Indication: GENERAL ANAESTHESIA
     Dosage: 34 MILLIGRAM
     Route: 065
  5. PROCAINAMIDE HYDROCHLORIDE. [Suspect]
     Active Substance: PROCAINAMIDE HYDROCHLORIDE
     Indication: VENTRICULAR TACHYCARDIA
     Dosage: 1 MILLIGRAM, QMINUTE
  6. LIDOCAINE. [Interacting]
     Active Substance: LIDOCAINE
     Indication: VENTRICULAR ARRHYTHMIA
     Dosage: 2 MG/MINUTE
     Route: 042
  7. LIDOCAINE. [Interacting]
     Active Substance: LIDOCAINE
     Dosage: 100 MILLIGRAM
     Route: 040
  8. AMIODARONE [Interacting]
     Active Substance: AMIODARONE
     Indication: VENTRICULAR TACHYCARDIA
     Dosage: 150 MILLIGRAM BOLUS
  9. EPOPROSTENOL. [Concomitant]
     Active Substance: EPOPROSTENOL
     Indication: VENTRICULAR TACHYCARDIA
     Dosage: 50 NG/KG
     Route: 065
  10. AMIODARONE [Interacting]
     Active Substance: AMIODARONE
     Dosage: 0.5 MILLIGRAM, QMINUTE
  11. EPINEPHRINE. [Suspect]
     Active Substance: EPINEPHRINE
     Dosage: 0.06 MICROGRAM/KILOGRAM, QMINUTE
  12. DOBUTAMINE [Suspect]
     Active Substance: DOBUTAMINE HYDROCHLORIDE
     Dosage: 7 MICROGRAM/KILOGRAM, QMINUTE
  13. VASOPRESSIN. [Suspect]
     Active Substance: VASOPRESSIN
     Indication: VENTRICULAR TACHYCARDIA
     Dosage: 0.03 UNITS/MINUTE
     Route: 065
  14. CEFEPIME [Concomitant]
     Active Substance: CEFEPIME HYDROCHLORIDE
     Indication: PRODUCT USED FOR UNKNOWN INDICATION
     Dosage: UNK
     Route: 065
  15. ROCURONIUM [Concomitant]
     Active Substance: ROCURONIUM BROMIDE
     Indication: GENERAL ANAESTHESIA
     Dosage: 50 MILLIGRAM
     Route: 065
  16. LIDOCAINE. [Interacting]
     Active Substance: LIDOCAINE
     Dosage: 200 MILLIGRAM
     Route: 040
  17. NOREPINEPHRINE. [Suspect]
     Active Substance: NOREPINEPHRINE
     Indication: VENTRICULAR TACHYCARDIA
     Dosage: 0.4 MICROGRAM/KILOGRAM, QMINUTE
  18. DEXMEDETOMIDINE. [Concomitant]
     Active Substance: DEXMEDETOMIDINE
     Indication: VENTRICULAR TACHYCARDIA
     Dosage: 0.7 MICROGRAM/KILOGRAM, QMINUTE
     Route: 065
  19. LIDOCAINE. [Interacting]
     Active Substance: LIDOCAINE
     Dosage: 4 MG/MINUTE
     Route: 042
  20. KETAMINE [Interacting]
     Active Substance: KETAMINE
     Indication: GENERAL ANAESTHESIA
     Dosage: 10 MILLIGRAM, QH
  21. AMIODARONE [Interacting]
     Active Substance: AMIODARONE
     Dosage: 1 MILLIGRAM, QMINUTE
  22. EPINEPHRINE. [Suspect]
     Active Substance: EPINEPHRINE
     Indication: VENTRICULAR TACHYCARDIA
     Dosage: 0.04 MICROGRAM/KILOGRAM, QMINUTE
  23. DOBUTAMINE [Suspect]
     Active Substance: DOBUTAMINE HYDROCHLORIDE
     Indication: VENTRICULAR TACHYCARDIA
     Dosage: 6 MICROGRAM/KILOGRAM, QMINUTE
  24. PROPOFOL. [Interacting]
     Active Substance: PROPOFOL
     Indication: GENERAL ANAESTHESIA
     Dosage: 50 MILLIGRAM
     Route: 065
  25. PHENYLEPHRINE [Suspect]
     Active Substance: PHENYLEPHRINE HYDROCHLORIDE
     Indication: VENTRICULAR TACHYCARDIA
     Dosage: 1.5 MICROGRAM/KILOGRAM, QMINUTE

REACTIONS (9)
  - Status epilepticus [Recovered/Resolved]
  - Off label use [Unknown]
  - Respiratory acidosis [Recovered/Resolved]
  - Hepatic function abnormal [Recovering/Resolving]
  - Drug interaction [Recovering/Resolving]
  - Ventricular arrhythmia [Recovering/Resolving]
  - Torsade de pointes [Recovering/Resolving]
  - Electrocardiogram QT prolonged [Unknown]
  - Local anaesthetic systemic toxicity [Recovering/Resolving]
